FAERS Safety Report 18634361 (Version 1)
Quarter: 2020Q4

REPORT INFORMATION
  Report Type: Spontaneous
  Country: US (occurrence: US)
  Receive Date: 20201218
  Receipt Date: 20201218
  Transmission Date: 20210114
  Serious: No
  Sender: FDA-Public Use
  Company Number: US-ASTRAZENECA-2020SF57344

PATIENT
  Sex: Female
  Weight: 77.1 kg

DRUGS (2)
  1. BREZTRI AEROSPHERE [Suspect]
     Active Substance: BUDESONIDE\FORMOTEROL\GLYCOPYRRONIUM
     Indication: CHRONIC OBSTRUCTIVE PULMONARY DISEASE
     Dosage: 2 PUFFS, TWICE DAILY (2 PUFFS IN THE MORNING, 2 PUFFS AT NIGHT)
     Route: 055
     Dates: start: 20201103
  2. BREZTRI AEROSPHERE [Suspect]
     Active Substance: BUDESONIDE\FORMOTEROL\GLYCOPYRRONIUM
     Indication: ASTHMA
     Dosage: 2 PUFFS, TWICE DAILY (2 PUFFS IN THE MORNING, 2 PUFFS AT NIGHT)
     Route: 055
     Dates: start: 20201103

REACTIONS (5)
  - Device malfunction [Unknown]
  - Dyspnoea [Unknown]
  - Device breakage [Unknown]
  - Device use issue [Unknown]
  - Off label use [Unknown]
